FAERS Safety Report 10533377 (Version 1)
Quarter: 2014Q4

REPORT INFORMATION
  Report Type: Spontaneous
  Country: US (occurrence: US)
  Receive Date: 20141022
  Receipt Date: 20141022
  Transmission Date: 20150529
  Serious: No
  Sender: FDA-Public Use
  Company Number: US-PFIZER INC-2014287209

PATIENT
  Age: 58 Year
  Sex: Female
  Weight: 86.17 kg

DRUGS (13)
  1. LANTUS [Concomitant]
     Active Substance: INSULIN GLARGINE
     Indication: DIABETES MELLITUS
     Dosage: 30 UNITS AM 25 UNITS PM
     Route: 058
  2. IRON [Suspect]
     Active Substance: IRON
     Indication: ANAEMIA
  3. LASIX [Concomitant]
     Active Substance: FUROSEMIDE
     Indication: HYPERTENSION
     Dosage: 20 MG, 1X/DAY
     Route: 048
  4. ATENOLOL. [Concomitant]
     Active Substance: ATENOLOL
     Indication: HYPERTENSION
     Dosage: 50 MG, UNK
     Route: 048
  5. LASIX [Concomitant]
     Active Substance: FUROSEMIDE
     Indication: FLUID RETENTION
  6. FERROUS SULFATE [Concomitant]
     Active Substance: FERROUS SULFATE\FERROUS SULFATE, DRIED
     Indication: ANAEMIA
     Dosage: 325 MG, 1X/DAY
     Route: 048
  7. ZANTAC [Concomitant]
     Active Substance: RANITIDINE HYDROCHLORIDE
     Indication: ABDOMINAL DISCOMFORT
     Dosage: 75 MG, 1X/DAY
     Route: 048
  8. NORCO [Concomitant]
     Active Substance: ACETAMINOPHEN\HYDROCODONE BITARTRATE
     Dosage: [HYDROCODONE BITARTRATE 5MG/PARACETAMOL 325MG] 3X/DAY AS NEEDED
  9. MORPHINE [Concomitant]
     Active Substance: MORPHINE
     Dosage: 15 MG, AS NEEDED
     Route: 048
  10. SENOKOT [Concomitant]
     Active Substance: SENNOSIDES
     Dosage: 8.6-50 MG AS NEEDED
     Route: 048
  11. LYRICA [Suspect]
     Active Substance: PREGABALIN
     Indication: NEUROPATHY PERIPHERAL
     Dosage: 100 MG, 3X/DAY
     Route: 048
  12. METFORMIN [Concomitant]
     Active Substance: METFORMIN HYDROCHLORIDE
     Indication: DIABETES MELLITUS
     Dosage: 1000 MG, 2X/DAY
     Route: 048
  13. MOTRIN [Concomitant]
     Active Substance: IBUPROFEN
     Dosage: 800 MG, AS NEEDED
     Route: 048

REACTIONS (2)
  - Balance disorder [Unknown]
  - Gait disturbance [Unknown]
